FAERS Safety Report 8617606-6 (Version None)
Quarter: 2012Q3

REPORT INFORMATION
  Report Type: 
  Country: None (occurrence: None)
  Receive Date: 20120824
  Receipt Date: 20111128
  Transmission Date: 20120928
  Serious: No
  Sender: FDA-Public Use
  Company Number: US-ASTRAZENECA-2011SE72686

PATIENT
  Age: 50 Year
  Sex: Female

DRUGS (2)
  1. OXYGEN [Concomitant]
  2. SYMBICORT [Suspect]
     Dosage: 80/4.5 MCG, UNKNWON
     Route: 055

REACTIONS (2)
  - DYSPNOEA EXERTIONAL [None]
  - DRUG DOSE OMISSION [None]
